FAERS Safety Report 18941978 (Version 3)
Quarter: 2021Q4

REPORT INFORMATION
  Report Type: Spontaneous
  Country: RO (occurrence: RO)
  Receive Date: 20210225
  Receipt Date: 20211005
  Transmission Date: 20220303
  Serious: Yes (Other)
  Sender: FDA-Public Use
  Company Number: RO-ABBVIE-21K-135-3784260-00

PATIENT
  Age: 72 Year
  Sex: Male

DRUGS (13)
  1. VENETOCLAX [Suspect]
     Active Substance: VENETOCLAX
     Indication: Acute myeloid leukaemia
     Dosage: 120 PILLS/MONTH
     Route: 048
     Dates: start: 201801, end: 201803
  2. VENETOCLAX [Suspect]
     Active Substance: VENETOCLAX
     Route: 048
     Dates: start: 202012
  3. VENETOCLAX [Suspect]
     Active Substance: VENETOCLAX
     Route: 048
     Dates: start: 202102, end: 2021
  4. VENETOCLAX [Suspect]
     Active Substance: VENETOCLAX
     Dosage: 2 CYCLE
     Route: 048
     Dates: start: 202103, end: 202104
  5. VENETOCLAX [Suspect]
     Active Substance: VENETOCLAX
     Dosage: 2 CYCLE
     Route: 048
     Dates: start: 202105, end: 2021
  6. VENETOCLAX [Suspect]
     Active Substance: VENETOCLAX
     Dosage: 2 CYCLE
     Route: 048
     Dates: start: 202107
  7. VIDAZA [Concomitant]
     Active Substance: AZACITIDINE
     Indication: Acute myeloid leukaemia
     Dates: start: 201801, end: 201802
  8. AZACITIDINE [Concomitant]
     Active Substance: AZACITIDINE
     Indication: Acute myeloid leukaemia
     Dates: start: 201801, end: 201803
  9. AZACITIDINE [Concomitant]
     Active Substance: AZACITIDINE
     Dates: start: 202012, end: 202101
  10. AZACITIDINE [Concomitant]
     Active Substance: AZACITIDINE
     Dates: start: 202102
  11. PERINDOPRIL [Concomitant]
     Active Substance: PERINDOPRIL
     Indication: Hypertension
  12. ALLOPURINOL [Concomitant]
     Active Substance: ALLOPURINOL
     Indication: Product used for unknown indication
     Dates: start: 202012
  13. SODIUM CARBONATE [Concomitant]
     Active Substance: SODIUM CARBONATE
     Indication: Product used for unknown indication
     Route: 042
     Dates: start: 202012

REACTIONS (5)
  - Allogenic stem cell transplantation [Unknown]
  - Acute graft versus host disease [Recovered/Resolved]
  - Acute myeloid leukaemia recurrent [Recovered/Resolved]
  - Off label use [Unknown]
  - Cytomegalovirus infection reactivation [Recovered/Resolved]

NARRATIVE: CASE EVENT DATE: 20180101
